FAERS Safety Report 25757899 (Version 2)
Quarter: 2025Q4

REPORT INFORMATION
  Report Type: Spontaneous
  Country: CA (occurrence: CA)
  Receive Date: 20250903
  Receipt Date: 20251103
  Transmission Date: 20260118
  Serious: Yes (Death, Life-Threatening, Hospitalization, Disabling, Congenital Anomaly, Other)
  Sender: NOVARTIS
  Company Number: CA-SANDOZ-SDZ2025CA060834

PATIENT

DRUGS (171)
  1. ADALIMUMAB [Suspect]
     Active Substance: ADALIMUMAB
     Indication: Foetal exposure during pregnancy
     Dosage: MATERNAL EXPOSURE DURING PREGNANCY:20 MG
     Route: 064
  2. ADALIMUMAB [Suspect]
     Active Substance: ADALIMUMAB
     Dosage: MATERNAL EXPOSURE DURING PREGNANCY:40 MG
     Route: 064
  3. ADALIMUMAB [Suspect]
     Active Substance: ADALIMUMAB
     Dosage: MATERNAL EXPOSURE DURING PREGNANCY:UNK
     Route: 064
  4. PANTOPRAZOLE [Suspect]
     Active Substance: PANTOPRAZOLE
     Indication: Foetal exposure during pregnancy
     Dosage: MATERNAL EXPOSURE DURING PREGNANCY:2000 MG
     Route: 064
  5. PANTOPRAZOLE [Suspect]
     Active Substance: PANTOPRAZOLE
     Dosage: MATERNAL EXPOSURE DURING PREGNANCY:UNK (OTHER)
     Route: 065
  6. PANTOPRAZOLE [Suspect]
     Active Substance: PANTOPRAZOLE
     Dosage: MATERNAL EXPOSURE DURING PREGNANCY:UNK
     Route: 065
  7. PANTOPRAZOLE [Suspect]
     Active Substance: PANTOPRAZOLE
     Dosage: MATERNAL EXPOSURE DURING PREGNANCY:UNK (OTHER)
     Route: 065
  8. PANTOPRAZOLE [Suspect]
     Active Substance: PANTOPRAZOLE
     Dosage: MATERNAL EXPOSURE DURING PREGNANCY:2000 MG
     Route: 064
  9. PANTOPRAZOLE [Suspect]
     Active Substance: PANTOPRAZOLE
     Dosage: MATERNAL EXPOSURE DURING PREGNANCY:2000 MG
     Route: 064
  10. RITUXIMAB [Suspect]
     Active Substance: RITUXIMAB
     Indication: Foetal exposure during pregnancy
     Dosage: MATERNAL EXPOSURE DURING PREGNANCY:UNK
     Route: 065
  11. RITUXIMAB [Suspect]
     Active Substance: RITUXIMAB
     Dosage: MATERNAL EXPOSURE DURING PREGNANCY:265.5 MG
     Route: 065
  12. DICLOFENAC SODIUM [Suspect]
     Active Substance: DICLOFENAC SODIUM
     Indication: Foetal exposure during pregnancy
     Dosage: MATERNAL EXPOSURE DURING PREGNANCY:225 MG
     Route: 064
  13. DICLOFENAC SODIUM [Suspect]
     Active Substance: DICLOFENAC SODIUM
     Dosage: MATERNAL EXPOSURE DURING PREGNANCY:225 MG
     Route: 064
  14. DICLOFENAC SODIUM [Suspect]
     Active Substance: DICLOFENAC SODIUM
     Dosage: MATERNAL EXPOSURE DURING PREGNANCY:50 MG
     Route: 064
  15. DICLOFENAC SODIUM [Suspect]
     Active Substance: DICLOFENAC SODIUM
     Dosage: MATERNAL EXPOSURE DURING PREGNANCY:500 MG
     Route: 064
  16. DICLOFENAC SODIUM [Suspect]
     Active Substance: DICLOFENAC SODIUM
     Dosage: MATERNAL EXPOSURE DURING PREGNANCY:UNK
     Route: 064
  17. ERELZI [Suspect]
     Active Substance: ETANERCEPT-SZZS
     Indication: Foetal exposure during pregnancy
     Dosage: MATERNAL EXPOSURE DURING PREGNANCY:50 MG, QD
     Route: 064
  18. LEFLUNOMIDE [Suspect]
     Active Substance: LEFLUNOMIDE
     Indication: Foetal exposure during pregnancy
     Dosage: MATERNAL EXPOSURE DURING PREGNANCY:20 MG
     Route: 064
  19. MYCOPHENOLATE MOFETIL [Suspect]
     Active Substance: MYCOPHENOLATE MOFETIL
     Indication: Foetal exposure during pregnancy
     Dosage: MATERNAL EXPOSURE DURING PREGNANCY:20 MG
     Route: 064
  20. QUETIAPINE [Suspect]
     Active Substance: QUETIAPINE
     Indication: Foetal exposure during pregnancy
     Dosage: MATERNAL EXPOSURE DURING PREGNANCY:UNK
     Route: 064
  21. PREGABALIN [Suspect]
     Active Substance: PREGABALIN
     Indication: Foetal exposure during pregnancy
     Dosage: MATERNAL EXPOSURE DURING PREGNANCY:UNK
     Route: 064
  22. PREGABALIN [Suspect]
     Active Substance: PREGABALIN
     Dosage: MATERNAL EXPOSURE DURING PREGNANCY:UNK
     Route: 064
  23. ALENDRONIC ACID [Suspect]
     Active Substance: ALENDRONIC ACID
     Indication: Foetal exposure during pregnancy
     Dosage: MATERNAL EXPOSURE DURING PREGNANCY:UNK
     Route: 064
  24. ALENDRONIC ACID [Suspect]
     Active Substance: ALENDRONIC ACID
     Dosage: MATERNAL EXPOSURE DURING PREGNANCY:2000 MG, QD
     Route: 064
  25. ALENDRONIC ACID [Suspect]
     Active Substance: ALENDRONIC ACID
     Dosage: MATERNAL EXPOSURE DURING PREGNANCY:UNK
     Route: 064
  26. ALENDRONIC ACID [Suspect]
     Active Substance: ALENDRONIC ACID
     Dosage: MATERNAL EXPOSURE DURING PREGNANCY:UNK
     Route: 064
  27. ALENDRONIC ACID [Suspect]
     Active Substance: ALENDRONIC ACID
     Dosage: MATERNAL EXPOSURE DURING PREGNANCY:40 MG
     Route: 064
  28. COSENTYX [Suspect]
     Active Substance: SECUKINUMAB
     Indication: Foetal exposure during pregnancy
     Dosage: MATERNAL EXPOSURE DURING PREGNANCY:UNK
     Route: 064
  29. MAGNESIUM [Suspect]
     Active Substance: MAGNESIUM
     Indication: Foetal exposure during pregnancy
     Dosage: MATERNAL EXPOSURE DURING PREGNANCY:10 MG
     Route: 064
  30. FLUOROMETHOLONE [Suspect]
     Active Substance: FLUOROMETHOLONE
     Indication: Foetal exposure during pregnancy
     Dosage: MATERNAL EXPOSURE DURING PREGNANCY:UNK
     Route: 064
  31. LANSOPRAZOLE [Suspect]
     Active Substance: LANSOPRAZOLE
     Indication: Foetal exposure during pregnancy
     Dosage: MATERNAL EXPOSURE DURING PREGNANCY:400 MG, OTHER
     Route: 064
  32. INFLIXIMAB [Suspect]
     Active Substance: INFLIXIMAB
     Indication: Foetal exposure during pregnancy
     Dosage: MATERNAL EXPOSURE DURING PREGNANCY:UNK
     Route: 064
  33. VITAMIN C [Suspect]
     Active Substance: ASCORBIC ACID
     Indication: Foetal exposure during pregnancy
     Dosage: MATERNAL EXPOSURE DURING PREGNANCY:1000 MG
     Route: 064
  34. METHOTREXATE [Suspect]
     Active Substance: METHOTREXATE
     Indication: Foetal exposure during pregnancy
     Dosage: MATERNAL EXPOSURE DURING PREGNANCY:20 MG, QW
     Route: 064
  35. METHOTREXATE [Suspect]
     Active Substance: METHOTREXATE
     Dosage: MATERNAL EXPOSURE DURING PREGNANCY:UNK
     Route: 064
  36. METHOTREXATE [Suspect]
     Active Substance: METHOTREXATE
     Dosage: MATERNAL EXPOSURE DURING PREGNANCY:2 MG
     Route: 064
  37. METHOTREXATE [Suspect]
     Active Substance: METHOTREXATE
     Dosage: MATERNAL EXPOSURE DURING PREGNANCY:25 MG, QD
     Route: 064
  38. METHOTREXATE [Suspect]
     Active Substance: METHOTREXATE
     Dosage: MATERNAL EXPOSURE DURING PREGNANCY:15 MG, QD
     Route: 064
  39. METHOTREXATE [Suspect]
     Active Substance: METHOTREXATE
     Dosage: MATERNAL EXPOSURE DURING PREGNANCY:1 G
     Route: 064
  40. METHOTREXATE [Suspect]
     Active Substance: METHOTREXATE
     Dosage: MATERNAL EXPOSURE DURING PREGNANCY:225 MG
     Route: 064
  41. ERGOCALCIFEROL [Suspect]
     Active Substance: ERGOCALCIFEROL
     Indication: Foetal exposure during pregnancy
     Dosage: MATERNAL EXPOSURE DURING PREGNANCY:500 MG
     Route: 064
  42. DIPHENHYDRAMINE HYDROCHLORIDE [Suspect]
     Active Substance: DIPHENHYDRAMINE HYDROCHLORIDE
     Indication: Foetal exposure during pregnancy
     Dosage: MATERNAL EXPOSURE DURING PREGNANCY:UNK
     Route: 064
  43. LORAZEPAM [Suspect]
     Active Substance: LORAZEPAM
     Indication: Foetal exposure during pregnancy
     Dosage: MATERNAL EXPOSURE DURING PREGNANCY:1 MG
     Route: 064
  44. CELECOXIB [Suspect]
     Active Substance: CELECOXIB
     Indication: Foetal exposure during pregnancy
     Dosage: MATERNAL EXPOSURE DURING PREGNANCY:20 MG, QD
     Route: 064
  45. CELECOXIB [Suspect]
     Active Substance: CELECOXIB
     Dosage: MATERNAL EXPOSURE DURING PREGNANCY:10 MG, QD
     Route: 064
  46. CELECOXIB [Suspect]
     Active Substance: CELECOXIB
     Dosage: MATERNAL EXPOSURE DURING PREGNANCY:2 DOSAGE FORM, QD
     Route: 064
  47. CELECOXIB [Suspect]
     Active Substance: CELECOXIB
     Dosage: MATERNAL EXPOSURE DURING PREGNANCY:7.5 MG, QD
     Route: 064
  48. CELECOXIB [Suspect]
     Active Substance: CELECOXIB
     Dosage: MATERNAL EXPOSURE DURING PREGNANCY:75 MG
     Route: 064
  49. IMURAN [Suspect]
     Active Substance: AZATHIOPRINE
     Indication: Foetal exposure during pregnancy
     Dosage: MATERNAL EXPOSURE DURING PREGNANCY:UNK
     Route: 064
  50. PREVACID [Suspect]
     Active Substance: LANSOPRAZOLE
     Indication: Foetal exposure during pregnancy
     Dosage: MATERNAL EXPOSURE DURING PREGNANCY:UNK
     Route: 064
  51. ATIVAN [Suspect]
     Active Substance: LORAZEPAM
     Indication: Foetal exposure during pregnancy
     Dosage: MATERNAL EXPOSURE DURING PREGNANCY:UNK
     Route: 064
  52. SULFASALAZINE [Suspect]
     Active Substance: SULFASALAZINE
     Indication: Foetal exposure during pregnancy
     Dosage: MATERNAL EXPOSURE DURING PREGNANCY:500 MG
     Route: 064
  53. SULFASALAZINE [Suspect]
     Active Substance: SULFASALAZINE
     Dosage: MATERNAL EXPOSURE DURING PREGNANCY:1000 G
     Route: 064
  54. XELJANZ [Suspect]
     Active Substance: TOFACITINIB CITRATE
     Indication: Foetal exposure during pregnancy
     Dosage: MATERNAL EXPOSURE DURING PREGNANCY:10 MG, QW
     Route: 064
  55. XELJANZ [Suspect]
     Active Substance: TOFACITINIB CITRATE
     Dosage: MATERNAL EXPOSURE DURING PREGNANCY:5 MG, QW
     Route: 064
  56. SULFASALAZINE [Suspect]
     Active Substance: SULFASALAZINE
     Indication: Foetal exposure during pregnancy
     Dosage: MATERNAL EXPOSURE DURING PREGNANCY:2000 MG
     Route: 064
  57. SULFASALAZINE [Suspect]
     Active Substance: SULFASALAZINE
     Dosage: MATERNAL EXPOSURE DURING PREGNANCY:100 MG
     Route: 064
  58. SULFASALAZINE [Suspect]
     Active Substance: SULFASALAZINE
     Dosage: MATERNAL EXPOSURE DURING PREGNANCY:300 MG
     Route: 064
  59. SULFASALAZINE [Suspect]
     Active Substance: SULFASALAZINE
     Dosage: MATERNAL EXPOSURE DURING PREGNANCY:2 MG
     Route: 064
  60. TOFACITINIB [Suspect]
     Active Substance: TOFACITINIB
     Indication: Foetal exposure during pregnancy
     Dosage: MATERNAL EXPOSURE DURING PREGNANCY:10 MG, QD
     Route: 064
  61. MESALAMINE [Suspect]
     Active Substance: MESALAMINE
     Indication: Foetal exposure during pregnancy
     Dosage: MATERNAL EXPOSURE DURING PREGNANCY:UNK
     Route: 064
  62. ACETAMINOPHEN [Suspect]
     Active Substance: ACETAMINOPHEN
     Indication: Foetal exposure during pregnancy
     Dosage: MATERNAL EXPOSURE DURING PREGNANCY:UNK
     Route: 064
  63. ACETAMINOPHEN [Suspect]
     Active Substance: ACETAMINOPHEN
     Dosage: MATERNAL EXPOSURE DURING PREGNANCY:10 MG
     Route: 064
  64. ACETAMINOPHEN [Suspect]
     Active Substance: ACETAMINOPHEN
     Dosage: MATERNAL EXPOSURE DURING PREGNANCY:20 MG
     Route: 064
  65. ACETAMINOPHEN [Suspect]
     Active Substance: ACETAMINOPHEN
     Dosage: MATERNAL EXPOSURE DURING PREGNANCY:UNK
     Route: 064
  66. ACETAMINOPHEN [Suspect]
     Active Substance: ACETAMINOPHEN
     Dosage: MATERNAL EXPOSURE DURING PREGNANCY:50 MG
     Route: 064
  67. ACETAMINOPHEN [Suspect]
     Active Substance: ACETAMINOPHEN
     Dosage: MATERNAL EXPOSURE DURING PREGNANCY:UNK
     Route: 064
  68. ACETAMINOPHEN [Suspect]
     Active Substance: ACETAMINOPHEN
     Dosage: MATERNAL EXPOSURE DURING PREGNANCY:500 MG
     Route: 064
  69. ACETAMINOPHEN [Suspect]
     Active Substance: ACETAMINOPHEN
     Dosage: MATERNAL EXPOSURE DURING PREGNANCY:UNK
     Route: 064
  70. PREDNISONE [Suspect]
     Active Substance: PREDNISONE
     Indication: Foetal exposure during pregnancy
     Dosage: MATERNAL EXPOSURE DURING PREGNANCY:40 MG
     Route: 064
  71. PREDNISONE [Suspect]
     Active Substance: PREDNISONE
     Dosage: MATERNAL EXPOSURE DURING PREGNANCY:5 MG
     Route: 064
  72. RAMIPRIL [Suspect]
     Active Substance: RAMIPRIL
     Indication: Foetal exposure during pregnancy
     Dosage: MATERNAL EXPOSURE DURING PREGNANCY:UNK
     Route: 064
  73. ENBREL [Suspect]
     Active Substance: ETANERCEPT
     Indication: Foetal exposure during pregnancy
     Dosage: MATERNAL EXPOSURE DURING PREGNANCY:50 MG
     Route: 064
  74. ENBREL [Suspect]
     Active Substance: ETANERCEPT
     Dosage: MATERNAL EXPOSURE DURING PREGNANCY:20 MG, QW
     Route: 064
  75. ENBREL [Suspect]
     Active Substance: ETANERCEPT
     Dosage: MATERNAL EXPOSURE DURING PREGNANCY:200 MG
     Route: 064
  76. ENBREL [Suspect]
     Active Substance: ETANERCEPT
     Dosage: MATERNAL EXPOSURE DURING PREGNANCY:90 MG
     Route: 064
  77. ENBREL [Suspect]
     Active Substance: ETANERCEPT
     Dosage: MATERNAL EXPOSURE DURING PREGNANCY:50 MG, QW
     Route: 064
  78. ENBREL [Suspect]
     Active Substance: ETANERCEPT
     Dosage: MATERNAL EXPOSURE DURING PREGNANCY:1 DOSAGE FORM
     Route: 064
  79. MORPHINE HYDROCHLORIDE [Suspect]
     Active Substance: MORPHINE HYDROCHLORIDE
     Indication: Foetal exposure during pregnancy
     Dosage: MATERNAL EXPOSURE DURING PREGNANCY:UNK
     Route: 064
  80. HYALURONIDASE [Suspect]
     Active Substance: HYALURONIDASE
     Indication: Foetal exposure during pregnancy
     Dosage: MATERNAL EXPOSURE DURING PREGNANCY:UNK
     Route: 064
  81. CAFFEINE [Suspect]
     Active Substance: CAFFEINE
     Indication: Foetal exposure during pregnancy
     Dosage: MATERNAL EXPOSURE DURING PREGNANCY:UNK
     Route: 064
  82. CODEINE PHOSPHATE [Suspect]
     Active Substance: CODEINE PHOSPHATE
     Indication: Foetal exposure during pregnancy
     Dosage: MATERNAL EXPOSURE DURING PREGNANCY:UNK
     Route: 064
  83. CALCIUM CARBONATE [Suspect]
     Active Substance: CALCIUM CARBONATE
     Indication: Foetal exposure during pregnancy
     Dosage: MATERNAL EXPOSURE DURING PREGNANCY:UNK
     Route: 064
  84. ASACOL [Suspect]
     Active Substance: MESALAMINE
     Indication: Foetal exposure during pregnancy
     Dosage: MATERNAL EXPOSURE DURING PREGNANCY:UNK
     Route: 064
  85. PREDNISONE [Suspect]
     Active Substance: PREDNISONE
     Indication: Foetal exposure during pregnancy
     Dosage: MATERNAL EXPOSURE DURING PREGNANCY:40 MG
     Route: 064
  86. PREDNISONE [Suspect]
     Active Substance: PREDNISONE
     Dosage: MATERNAL EXPOSURE DURING PREGNANCY:5 MG
     Route: 064
  87. PREDNISONE [Suspect]
     Active Substance: PREDNISONE
     Dosage: MATERNAL EXPOSURE DURING PREGNANCY:1 MG
     Route: 064
  88. PREDNISONE [Suspect]
     Active Substance: PREDNISONE
     Dosage: MATERNAL EXPOSURE DURING PREGNANCY:25 MG
     Route: 064
  89. PSEUDOEPHEDRINE HYDROCHLORIDE [Suspect]
     Active Substance: PSEUDOEPHEDRINE HYDROCHLORIDE
     Indication: Foetal exposure during pregnancy
     Dosage: MATERNAL EXPOSURE DURING PREGNANCY:3011.2 MG
     Route: 064
  90. PSEUDOEPHEDRINE HYDROCHLORIDE [Suspect]
     Active Substance: PSEUDOEPHEDRINE HYDROCHLORIDE
     Dosage: MATERNAL EXPOSURE DURING PREGNANCY:1 MG
     Route: 064
  91. PSEUDOEPHEDRINE HYDROCHLORIDE [Suspect]
     Active Substance: PSEUDOEPHEDRINE HYDROCHLORIDE
     Dosage: MATERNAL EXPOSURE DURING PREGNANCY:25 MG
     Route: 064
  92. PSEUDOEPHEDRINE HYDROCHLORIDE [Suspect]
     Active Substance: PSEUDOEPHEDRINE HYDROCHLORIDE
     Dosage: 1MATERNAL EXPOSURE DURING PREGNANCY:0 MG
     Route: 064
  93. ACTEMRA [Suspect]
     Active Substance: TOCILIZUMAB
     Indication: Foetal exposure during pregnancy
     Dosage: MATERNAL EXPOSURE DURING PREGNANCY:752 MG
     Route: 064
  94. ACTEMRA [Suspect]
     Active Substance: TOCILIZUMAB
     Dosage: MATERNAL EXPOSURE DURING PREGNANCY:UNK
     Route: 064
  95. ACTEMRA [Suspect]
     Active Substance: TOCILIZUMAB
     Dosage: MATERNAL EXPOSURE DURING PREGNANCY:3011.2 MG
     Route: 064
  96. ACTEMRA [Suspect]
     Active Substance: TOCILIZUMAB
     Dosage: MATERNAL EXPOSURE DURING PREGNANCY:UNK
     Route: 064
  97. ACTEMRA [Suspect]
     Active Substance: TOCILIZUMAB
     Dosage: MATERNAL EXPOSURE DURING PREGNANCY:2912 MG, QD
     Route: 064
  98. ACTEMRA [Suspect]
     Active Substance: TOCILIZUMAB
     Dosage: MATERNAL EXPOSURE DURING PREGNANCY:728 MG, QD
     Route: 064
  99. ACTEMRA [Suspect]
     Active Substance: TOCILIZUMAB
     Dosage: MATERNAL EXPOSURE DURING PREGNANCY:20 MG, QD
     Route: 064
  100. ACTEMRA [Suspect]
     Active Substance: TOCILIZUMAB
     Dosage: MATERNAL EXPOSURE DURING PREGNANCY:752 MG, QD
     Route: 064
  101. ARAVA [Suspect]
     Active Substance: LEFLUNOMIDE
     Indication: Foetal exposure during pregnancy
     Dosage: MATERNAL EXPOSURE DURING PREGNANCY:10 MG, QD
     Route: 064
  102. ARAVA [Suspect]
     Active Substance: LEFLUNOMIDE
     Dosage: MATERNAL EXPOSURE DURING PREGNANCY:1 DOSAGE FORM
     Route: 064
  103. ARAVA [Suspect]
     Active Substance: LEFLUNOMIDE
     Dosage: MATERNAL EXPOSURE DURING PREGNANCY:UNK
     Route: 064
  104. ARAVA [Suspect]
     Active Substance: LEFLUNOMIDE
     Dosage: MATERNAL EXPOSURE DURING PREGNANCY:20 MG
     Route: 064
  105. ARAVA [Suspect]
     Active Substance: LEFLUNOMIDE
     Dosage: MATERNAL EXPOSURE DURING PREGNANCY:2000 MG, QD
     Route: 064
  106. ARAVA [Suspect]
     Active Substance: LEFLUNOMIDE
     Dosage: MATERNAL EXPOSURE DURING PREGNANCY:UNK
     Route: 064
  107. ARAVA [Suspect]
     Active Substance: LEFLUNOMIDE
     Dosage: MATERNAL EXPOSURE DURING PREGNANCY:10 MG
     Route: 064
  108. ADVIL [Suspect]
     Active Substance: IBUPROFEN
     Indication: Foetal exposure during pregnancy
     Dosage: MATERNAL EXPOSURE DURING PREGNANCY:UNK
     Route: 064
  109. CAFFEINE CITRATE [Suspect]
     Active Substance: CAFFEINE CITRATE
     Indication: Foetal exposure during pregnancy
     Dosage: MATERNAL EXPOSURE DURING PREGNANCY:UNK
     Route: 064
  110. CETIRIZINE HYDROCHLORIDE [Suspect]
     Active Substance: CETIRIZINE HYDROCHLORIDE
     Indication: Foetal exposure during pregnancy
     Dosage: MATERNAL EXPOSURE DURING PREGNANCY:10 MG
     Route: 064
  111. CETIRIZINE HYDROCHLORIDE [Suspect]
     Active Substance: CETIRIZINE HYDROCHLORIDE
     Dosage: MATERNAL EXPOSURE DURING PREGNANCY:25 MG
     Route: 064
  112. CETIRIZINE HYDROCHLORIDE [Suspect]
     Active Substance: CETIRIZINE HYDROCHLORIDE
     Dosage: MATERNAL EXPOSURE DURING PREGNANCY:UNK
     Route: 064
  113. CHLORAPREP [Suspect]
     Active Substance: CHLORHEXIDINE GLUCONATE\ISOPROPYL ALCOHOL
     Indication: Foetal exposure during pregnancy
     Dosage: MATERNAL EXPOSURE DURING PREGNANCY:1 G
     Route: 064
  114. CHLORAPREP [Suspect]
     Active Substance: CHLORHEXIDINE GLUCONATE\ISOPROPYL ALCOHOL
     Dosage: MATERNAL EXPOSURE DURING PREGNANCY:12 MG, QD
     Route: 064
  115. CHLORHEXIDINE [Suspect]
     Active Substance: CHLORHEXIDINE
     Indication: Foetal exposure during pregnancy
     Dosage: MATERNAL EXPOSURE DURING PREGNANCY:UNK
     Route: 064
  116. CHLORHEXIDINE [Suspect]
     Active Substance: CHLORHEXIDINE
     Dosage: MATERNAL EXPOSURE DURING PREGNANCY:120 MG, QW
     Route: 064
  117. CHLORHEXIDINE [Suspect]
     Active Substance: CHLORHEXIDINE
     Dosage: MATERNAL EXPOSURE DURING PREGNANCY:120 MG, QD
     Route: 064
  118. CHLORHEXIDINE [Suspect]
     Active Substance: CHLORHEXIDINE
     Dosage: MATERNAL EXPOSURE DURING PREGNANCY:1 G, QD
     Route: 064
  119. CHOLECALCIFEROL [Suspect]
     Active Substance: CHOLECALCIFEROL
     Indication: Foetal exposure during pregnancy
     Dosage: MATERNAL EXPOSURE DURING PREGNANCY:752.8 MG
     Route: 064
  120. CHOLECALCIFEROL [Suspect]
     Active Substance: CHOLECALCIFEROL
     Dosage: MATERNAL EXPOSURE DURING PREGNANCY:UNK
     Route: 064
  121. CIMZIA [Suspect]
     Active Substance: CERTOLIZUMAB PEGOL
     Indication: Foetal exposure during pregnancy
     Dosage: MATERNAL EXPOSURE DURING PREGNANCY:400 MG
     Route: 064
  122. CIMZIA [Suspect]
     Active Substance: CERTOLIZUMAB PEGOL
     Dosage: MATERNAL EXPOSURE DURING PREGNANCY:UNK
     Route: 064
  123. DESOXIMETASONE [Suspect]
     Active Substance: DESOXIMETASONE
     Indication: Foetal exposure during pregnancy
     Dosage: MATERNAL EXPOSURE DURING PREGNANCY:728 MG
     Route: 064
  124. DESOXIMETASONE [Suspect]
     Active Substance: DESOXIMETASONE
     Dosage: MATERNAL EXPOSURE DURING PREGNANCY:UNK
     Route: 064
  125. DESOXIMETASONE [Suspect]
     Active Substance: DESOXIMETASONE
     Dosage: MATERNAL EXPOSURE DURING PREGNANCY:25 MG
     Route: 064
  126. DESOXIMETASONE [Suspect]
     Active Substance: DESOXIMETASONE
     Dosage: MATERNAL EXPOSURE DURING PREGNANCY:5 MG
     Route: 064
  127. DOXYCYCLINE HYCLATE [Suspect]
     Active Substance: DOXYCYCLINE HYCLATE
     Indication: Foetal exposure during pregnancy
     Dosage: MATERNAL EXPOSURE DURING PREGNANCY:UNK
     Route: 064
  128. DOXYCYCLINE HYCLATE [Suspect]
     Active Substance: DOXYCYCLINE HYCLATE
     Dosage: MATERNAL EXPOSURE DURING PREGNANCY:UNK
     Route: 064
  129. ERYTHROMYCIN [Suspect]
     Active Substance: ERYTHROMYCIN
     Indication: Foetal exposure during pregnancy
     Dosage: MATERNAL EXPOSURE DURING PREGNANCY:UNK
     Route: 064
  130. FOLIC ACID [Suspect]
     Active Substance: FOLIC ACID
     Indication: Foetal exposure during pregnancy
     Dosage: MATERNAL EXPOSURE DURING PREGNANCY:1 MG
     Route: 064
  131. FOLIC ACID [Suspect]
     Active Substance: FOLIC ACID
     Dosage: MATERNAL EXPOSURE DURING PREGNANCY:500 G
     Route: 064
  132. FOLIC ACID [Suspect]
     Active Substance: FOLIC ACID
     Dosage: MATERNAL EXPOSURE DURING PREGNANCY:50 MG
     Route: 064
  133. FOLIC ACID [Suspect]
     Active Substance: FOLIC ACID
     Dosage: MATERNAL EXPOSURE DURING PREGNANCY:25 MG
     Route: 064
  134. FOLIC ACID [Suspect]
     Active Substance: FOLIC ACID
     Dosage: MATERNAL EXPOSURE DURING PREGNANCY:5 MG
     Route: 064
  135. FOLIC ACID [Suspect]
     Active Substance: FOLIC ACID
     Dosage: MATERNAL EXPOSURE DURING PREGNANCY:15 MG
     Route: 064
  136. FOLIC ACID [Suspect]
     Active Substance: FOLIC ACID
     Dosage: MATERNAL EXPOSURE DURING PREGNANCY:0.5 MG
     Route: 064
  137. FOSAMAX [Suspect]
     Active Substance: ALENDRONATE SODIUM
     Indication: Foetal exposure during pregnancy
     Dosage: MATERNAL EXPOSURE DURING PREGNANCY:UNK
     Route: 064
  138. FOSAMAX [Suspect]
     Active Substance: ALENDRONATE SODIUM
     Dosage: MATERNAL EXPOSURE DURING PREGNANCY:1 MG
     Route: 064
  139. FOSAMAX [Suspect]
     Active Substance: ALENDRONATE SODIUM
     Dosage: MATERNAL EXPOSURE DURING PREGNANCY:17.857 MG
     Route: 064
  140. FOSAPREPITANT [Suspect]
     Active Substance: FOSAPREPITANT
     Indication: Foetal exposure during pregnancy
     Dosage: MATERNAL EXPOSURE DURING PREGNANCY:2912 MG
     Route: 064
  141. GLUCOSAMINE [Suspect]
     Active Substance: GLUCOSAMINE
     Indication: Foetal exposure during pregnancy
     Dosage: MATERNAL EXPOSURE DURING PREGNANCY:UNK
     Route: 064
  142. HUMIRA [Suspect]
     Active Substance: ADALIMUMAB
     Indication: Foetal exposure during pregnancy
     Dosage: MATERNAL EXPOSURE DURING PREGNANCY:1 MG
     Route: 064
  143. HUMIRA [Suspect]
     Active Substance: ADALIMUMAB
     Dosage: MATERNAL EXPOSURE DURING PREGNANCY:400 MG
     Route: 064
  144. HUMIRA [Suspect]
     Active Substance: ADALIMUMAB
     Dosage: MATERNAL EXPOSURE DURING PREGNANCY:4 MG
     Route: 064
  145. ISOPROPYL ALCOHOL [Suspect]
     Active Substance: ISOPROPYL ALCOHOL
     Indication: Foetal exposure during pregnancy
     Dosage: MATERNAL EXPOSURE DURING PREGNANCY:2912 MG
     Route: 064
  146. LISINOPRIL [Suspect]
     Active Substance: LISINOPRIL
     Indication: Foetal exposure during pregnancy
     Dosage: MATERNAL EXPOSURE DURING PREGNANCY:UNK
     Route: 064
  147. CLIOQUINOL\FLUMETHASONE [Suspect]
     Active Substance: CLIOQUINOL\FLUMETHASONE
     Indication: Foetal exposure during pregnancy
     Dosage: MATERNAL EXPOSURE DURING PREGNANCY:UNK
     Route: 064
  148. MELOXICAM [Suspect]
     Active Substance: MELOXICAM
     Indication: Foetal exposure during pregnancy
     Dosage: MATERNAL EXPOSURE DURING PREGNANCY:UNK
     Route: 064
  149. NAPROXEN SODIUM [Suspect]
     Active Substance: NAPROXEN SODIUM
     Indication: Foetal exposure during pregnancy
     Dosage: MATERNAL EXPOSURE DURING PREGNANCY:0.5 MG, QD
     Route: 064
  150. NAPROXEN SODIUM [Suspect]
     Active Substance: NAPROXEN SODIUM
     Dosage: MATERNAL EXPOSURE DURING PREGNANCY:500 MG
     Route: 064
  151. ORENCIA [Suspect]
     Active Substance: ABATACEPT
     Indication: Foetal exposure during pregnancy
     Dosage: MATERNAL EXPOSURE DURING PREGNANCY:UNK
     Route: 064
  152. ORENCIA [Suspect]
     Active Substance: ABATACEPT
     Dosage: MATERNAL EXPOSURE DURING PREGNANCY:125 MG, QW
     Route: 064
  153. ORENCIA [Suspect]
     Active Substance: ABATACEPT
     Dosage: MATERNAL EXPOSURE DURING PREGNANCY:17 MG
     Route: 064
  154. ORENCIA [Suspect]
     Active Substance: ABATACEPT
     Dosage: MATERNAL EXPOSURE DURING PREGNANCY:125 MG, QW
     Route: 064
  155. OTEZLA [Suspect]
     Active Substance: APREMILAST
     Indication: Foetal exposure during pregnancy
     Dosage: MATERNAL EXPOSURE DURING PREGNANCY:3011.2 MG
     Route: 064
  156. OTEZLA [Suspect]
     Active Substance: APREMILAST
     Dosage: MATERNAL EXPOSURE DURING PREGNANCY:3 MG
     Route: 064
  157. OTEZLA [Suspect]
     Active Substance: APREMILAST
     Dosage: MATERNAL EXPOSURE DURING PREGNANCY:500 MG
     Route: 064
  158. PERCOCET [Suspect]
     Active Substance: ACETAMINOPHEN\OXYCODONE HYDROCHLORIDE
     Indication: Foetal exposure during pregnancy
     Dosage: MATERNAL EXPOSURE DURING PREGNANCY:25 MG, QD
     Route: 064
  159. PHTHALYLSULFATHIAZOLE [Suspect]
     Active Substance: PHTHALYLSULFATHIAZOLE
     Indication: Foetal exposure during pregnancy
     Dosage: MATERNAL EXPOSURE DURING PREGNANCY:1000 MG
     Route: 064
  160. PHTHALYLSULFATHIAZOLE [Suspect]
     Active Substance: PHTHALYLSULFATHIAZOLE
     Dosage: MATERNAL EXPOSURE DURING PREGNANCY:500 MG
     Route: 064
  161. PHTHALYLSULFATHIAZOLE [Suspect]
     Active Substance: PHTHALYLSULFATHIAZOLE
     Dosage: MATERNAL EXPOSURE DURING PREGNANCY:UNK
     Route: 064
  162. AMINOSALICYLATE SODIUM [Suspect]
     Active Substance: AMINOSALICYLATE SODIUM
     Indication: Foetal exposure during pregnancy
     Dosage: UNK
     Route: 065
  163. PLAQUENIL [Suspect]
     Active Substance: HYDROXYCHLOROQUINE SULFATE
     Indication: Foetal exposure during pregnancy
     Dosage: MATERNAL EXPOSURE DURING PREGNANCY:400 MG, QD
     Route: 064
  164. CETIRIZINE HYDROCHLORIDE [Suspect]
     Active Substance: CETIRIZINE HYDROCHLORIDE
     Indication: Foetal exposure during pregnancy
     Dosage: MATERNAL EXPOSURE DURING PREGNANCY:UNK
     Route: 064
  165. CETIRIZINE HYDROCHLORIDE [Suspect]
     Active Substance: CETIRIZINE HYDROCHLORIDE
     Dosage: MATERNAL EXPOSURE DURING PREGNANCY:10 MG, QD
     Route: 064
  166. CETIRIZINE HYDROCHLORIDE [Suspect]
     Active Substance: CETIRIZINE HYDROCHLORIDE
     Dosage: MATERNAL EXPOSURE DURING PREGNANCY:26 MG, QD
     Route: 064
  167. ALBUTEROL [Suspect]
     Active Substance: ALBUTEROL
     Indication: Foetal exposure during pregnancy
     Dosage: MATERNAL EXPOSURE DURING PREGNANCY:UNK
     Route: 064
  168. SIMPONI [Suspect]
     Active Substance: GOLIMUMAB
     Indication: Foetal exposure during pregnancy
     Dosage: MATERNAL EXPOSURE DURING PREGNANCY:UNK
     Route: 064
  169. STELARA [Suspect]
     Active Substance: USTEKINUMAB
     Indication: Foetal exposure during pregnancy
     Dosage: MATERNAL EXPOSURE DURING PREGNANCY:UNK
     Route: 064
  170. TUMS [Suspect]
     Active Substance: CALCIUM CARBONATE
     Indication: Foetal exposure during pregnancy
     Dosage: MATERNAL EXPOSURE DURING PREGNANCY:UNK
     Route: 064
  171. ZESTRIL [Suspect]
     Active Substance: LISINOPRIL
     Indication: Foetal exposure during pregnancy
     Dosage: MATERNAL EXPOSURE DURING PREGNANCY:500 MG
     Route: 064

REACTIONS (1)
  - Congenital anomaly [Fatal]
